FAERS Safety Report 25271273 (Version 4)
Quarter: 2025Q4

REPORT INFORMATION
  Report Type: Spontaneous
  Country: GB (occurrence: GB)
  Receive Date: 20250506
  Receipt Date: 20251031
  Transmission Date: 20260117
  Serious: Yes (Life-Threatening, Hospitalization, Other)
  Sender: NOVARTIS
  Company Number: GB-002147023-NVSC2025GB071554

PATIENT
  Age: 37 Year
  Sex: Female

DRUGS (1)
  1. COSENTYX [Suspect]
     Active Substance: SECUKINUMAB
     Indication: Ankylosing spondylitis
     Dosage: UNK
     Route: 065
     Dates: start: 20230320

REACTIONS (10)
  - Cerebrovascular accident [Unknown]
  - Acute disseminated encephalomyelitis [Unknown]
  - Vision blurred [Unknown]
  - Diplopia [Unknown]
  - Cognitive disorder [Unknown]
  - Dysarthria [Unknown]
  - Dry eye [Unknown]
  - Eye irritation [Unknown]
  - Quality of life decreased [Unknown]
  - Eye infection [Unknown]

NARRATIVE: CASE EVENT DATE: 20230324
